FAERS Safety Report 7819193-9 (Version None)
Quarter: 2011Q4

REPORT INFORMATION
  Report Type: 
  Country: None (occurrence: None)
  Receive Date: 20111012
  Receipt Date: 20110929
  Transmission Date: 20120403
  Serious: Yes (Hospitalization)
  Sender: FDA-Public Use
  Company Number: 2011MA014680

PATIENT
  Age: 36 Year
  Sex: Female

DRUGS (6)
  1. GABAPENTIN [Concomitant]
  2. MOVIPREP [Concomitant]
  3. PROCYCLIDINE HYDROCHLORIDE 2MG TAB [Concomitant]
  4. LORATADINE [Concomitant]
  5. TRAMADOL HYDROCHLORIDE [Suspect]
     Dosage: 100 MG;
     Dates: start: 20110822
  6. ACETAMINOPHEN [Concomitant]

REACTIONS (1)
  - DYSTONIA [None]
